FAERS Safety Report 19593178 (Version 2)
Quarter: 2021Q4

REPORT INFORMATION
  Report Type: Spontaneous
  Country: GB (occurrence: GB)
  Receive Date: 20210722
  Receipt Date: 20211223
  Transmission Date: 20220304
  Serious: Yes (Other)
  Sender: FDA-Public Use
  Company Number: GB-EMA-DD-20200820-GANGAL_S-200946

PATIENT
  Age: 88 Year
  Sex: Male

DRUGS (26)
  1. SIMVASTATIN [Suspect]
     Active Substance: SIMVASTATIN
     Indication: Prostate cancer
     Dosage: UNK
     Route: 065
  2. SIMVASTATIN [Suspect]
     Active Substance: SIMVASTATIN
     Indication: Pulmonary embolism
     Dosage: UNK
     Route: 065
  3. ATORVASTATIN [Suspect]
     Active Substance: ATORVASTATIN
     Indication: Product used for unknown indication
  4. ALLOPURINOL [Suspect]
     Active Substance: ALLOPURINOL
     Indication: Prostate cancer
     Dosage: UNK
     Route: 065
  5. ALLOPURINOL [Suspect]
     Active Substance: ALLOPURINOL
     Indication: Pulmonary embolism
     Dosage: UNK
     Route: 065
  6. AMLODIPINE BESYLATE [Suspect]
     Active Substance: AMLODIPINE BESYLATE
     Indication: Prostate cancer
     Dosage: UNK
     Route: 065
  7. AMLODIPINE BESYLATE [Suspect]
     Active Substance: AMLODIPINE BESYLATE
     Indication: Pulmonary embolism
  8. LUPRON DEPOT [Suspect]
     Active Substance: LEUPROLIDE ACETATE
     Indication: Prostate cancer
     Dosage: UNK
     Route: 065
  9. LUPRON DEPOT [Suspect]
     Active Substance: LEUPROLIDE ACETATE
     Indication: Pulmonary embolism
     Dosage: UNK
     Route: 065
     Dates: start: 2018
  10. LEUPROLIDE ACETATE [Suspect]
     Active Substance: LEUPROLIDE ACETATE
     Indication: Pulmonary embolism
     Dosage: UNK
     Route: 065
     Dates: start: 2018
  11. LEUPROLIDE ACETATE [Suspect]
     Active Substance: LEUPROLIDE ACETATE
     Indication: Prostate cancer
     Dosage: UNK
     Route: 065
  12. UNSPECIFIED INGREDIENT [Suspect]
     Active Substance: UNSPECIFIED INGREDIENT
     Indication: Pulmonary embolism
     Dosage: UNK
     Route: 065
  13. UNSPECIFIED INGREDIENT [Suspect]
     Active Substance: UNSPECIFIED INGREDIENT
     Indication: Product used for unknown indication
     Dosage: UNK
     Route: 065
  14. UNSPECIFIED INGREDIENT [Suspect]
     Active Substance: UNSPECIFIED INGREDIENT
     Indication: Product used for unknown indication
     Route: 065
  15. UNSPECIFIED INGREDIENT [Suspect]
     Active Substance: UNSPECIFIED INGREDIENT
     Indication: Prostate cancer
     Route: 065
  16. LISINOPRIL [Suspect]
     Active Substance: LISINOPRIL
     Indication: Pulmonary embolism
     Dosage: UNK
     Route: 065
  17. LISINOPRIL [Suspect]
     Active Substance: LISINOPRIL
     Indication: Prostate cancer
     Dosage: UNK
     Route: 065
  18. EDOXABAN [Suspect]
     Active Substance: EDOXABAN
     Indication: Pulmonary embolism
     Dosage: UNK
     Route: 065
  19. UNSPECIFIED INGREDIENT [Suspect]
     Active Substance: UNSPECIFIED INGREDIENT
     Indication: Product used for unknown indication
     Dosage: UNK
     Route: 065
  20. NYSTATIN [Suspect]
     Active Substance: NYSTATIN
     Indication: Prostate cancer
     Dosage: UNK
     Route: 065
  21. NYSTATIN [Suspect]
     Active Substance: NYSTATIN
     Indication: Pulmonary embolism
     Dosage: UNK
     Route: 065
  22. CARBOPLATIN [Concomitant]
     Active Substance: CARBOPLATIN
     Indication: Product used for unknown indication
  23. ETOPOSIDE [Concomitant]
     Active Substance: ETOPOSIDE
     Indication: Product used for unknown indication
  24. CARBOPLATIN;ETOPOSIDE [Concomitant]
     Indication: Prostate cancer
     Dosage: UNK
     Route: 065
     Dates: start: 201912
  25. CARBOPLATIN;ETOPOSIDE [Concomitant]
     Indication: Chemotherapy
     Dosage: UNK ()
     Route: 065
  26. THIABENDAZOLE [Concomitant]
     Active Substance: THIABENDAZOLE
     Indication: Product used for unknown indication

REACTIONS (10)
  - Off label use [Unknown]
  - Hydronephrosis [Unknown]
  - Pelvic mass [Unknown]
  - Blood urea abnormal [Unknown]
  - Prostate cancer recurrent [Unknown]
  - Disease progression [Unknown]
  - Lymphadenopathy [Unknown]
  - Malignant transformation [Unknown]
  - Blood electrolytes abnormal [Unknown]
  - Pulmonary embolism [Unknown]

NARRATIVE: CASE EVENT DATE: 20191201
